FAERS Safety Report 8170218-3 (Version None)
Quarter: 2012Q1

REPORT INFORMATION
  Report Type: 
  Country: None (occurrence: None)
  Receive Date: 20120228
  Receipt Date: 20120217
  Transmission Date: 20120608
  Serious: Yes (Other)
  Sender: FDA-Public Use
  Company Number: PHHY2012CH003163

PATIENT
  Sex: Male
  Weight: 85 kg

DRUGS (1)
  1. RASILEZ HCT [Suspect]
     Indication: HYPERTENSION
     Dosage: 2 DF, QD
     Route: 048

REACTIONS (10)
  - VERTIGO [None]
  - FALL [None]
  - ORTHOSTATIC INTOLERANCE [None]
  - LOSS OF CONSCIOUSNESS [None]
  - HYPERHIDROSIS [None]
  - CHEST DISCOMFORT [None]
  - CHEST PAIN [None]
  - MALAISE [None]
  - DIZZINESS [None]
  - PALPITATIONS [None]
